FAERS Safety Report 5280389-4 (Version None)
Quarter: 2007Q1

REPORT INFORMATION
  Report Type: 
  Country: None (occurrence: None)
  Receive Date: 20070326
  Receipt Date: 20070326
  Transmission Date: 20070707
  Serious: Yes (Life-Threatening, Other)
  Sender: FDA-Public Use
  Company Number: None

PATIENT
  Age: 43 Year
  Sex: Female
  Weight: 58.9676 kg

DRUGS (2)
  1. HALOPERIDOL [Suspect]
     Indication: MENTAL DISORDER
     Dosage: 1 MG A DAY 1 A DAY INTRACEREB
     Route: 018
     Dates: start: 19910319, end: 20070323
  2. BENZTROPINE MESYLATE 2MG TAB [Suspect]
     Dosage: 1 MG A DAY 1 A DAY INTRACEREBRAL
     Route: 018
     Dates: start: 19910319, end: 20070323

REACTIONS (3)
  - BLOOD POTASSIUM DECREASED [None]
  - DRUG DEPENDENCE [None]
  - TARDIVE DYSKINESIA [None]
